FAERS Safety Report 9145580 (Version 1)
Quarter: 2013Q1

REPORT INFORMATION
  Report Type: Spontaneous
  Country: US (occurrence: None)
  Receive Date: 20130227
  Receipt Date: 20130227
  Transmission Date: 20140127
  Serious: Yes (Hospitalization)
  Sender: FDA-Public Use
  Company Number: None

PATIENT
  Age: 62 Year
  Sex: Male
  Weight: 55.5 kg

DRUGS (1)
  1. CITALOPRAM [Suspect]
     Indication: DEPRESSION
     Dosage: 30 MG  AM  PO
     Route: 048
     Dates: start: 20100101, end: 20130104

REACTIONS (2)
  - Hyponatraemia [None]
  - Inappropriate antidiuretic hormone secretion [None]
